FAERS Safety Report 15498453 (Version 1)
Quarter: 2018Q4

REPORT INFORMATION
  Report Type: Spontaneous
  Country: US (occurrence: US)
  Receive Date: 20181005
  Receipt Date: 20181005
  Transmission Date: 20190205
  Serious: Yes (Hospitalization)
  Sender: FDA-Public Use
  Company Number: None

PATIENT
  Age: 17 Year
  Sex: Male
  Weight: 67.4 kg

DRUGS (2)
  1. DAUNORUBICIN (82151) [Suspect]
     Active Substance: DAUNORUBICIN
     Dates: end: 20180920
  2. METHOTREXATE (METHOTREXATE SODIUM) [Suspect]
     Active Substance: METHOTREXATE SODIUM
     Dates: end: 20180920

REACTIONS (6)
  - Eye movement disorder [None]
  - Slow speech [None]
  - Muscle twitching [None]
  - Tongue biting [None]
  - Facial spasm [None]
  - Dyskinesia [None]

NARRATIVE: CASE EVENT DATE: 20180922
